FAERS Safety Report 8071195-6 (Version None)
Quarter: 2012Q1

REPORT INFORMATION
  Report Type: 
  Country: None (occurrence: None)
  Receive Date: 20120125
  Receipt Date: 20120120
  Transmission Date: 20120608
  Serious: No
  Sender: FDA-Public Use
  Company Number: US-PFIZER INC-2012017288

PATIENT
  Sex: Female
  Weight: 49.433 kg

DRUGS (2)
  1. PROTONIX [Suspect]
     Indication: HIATUS HERNIA
     Dosage: 40 MG, 1X/DAY
     Route: 048
  2. OMEPRAZOLE [Suspect]
     Indication: HIATUS HERNIA
     Dosage: UNK
     Route: 048

REACTIONS (1)
  - DRUG INTOLERANCE [None]
